FAERS Safety Report 17062727 (Version 2)
Quarter: 2020Q2

REPORT INFORMATION
  Report Type: Spontaneous
  Country: US (occurrence: US)
  Receive Date: 20191122
  Receipt Date: 20200413
  Transmission Date: 20200713
  Serious: No
  Sender: FDA-Public Use
  Company Number: US-TEVA-2019-US-1138813

PATIENT
  Sex: Female
  Weight: 100 kg

DRUGS (1)
  1. COPAXONE [Suspect]
     Active Substance: GLATIRAMER ACETATE
     Indication: MULTIPLE SCLEROSIS
     Dosage: 17.1429 MILLIGRAM/MILLILITERS DAILY; THREE TIMES A WEEK
     Route: 065
     Dates: start: 2017, end: 201801

REACTIONS (9)
  - Heart rate increased [Unknown]
  - Hyperhidrosis [Unknown]
  - Feeling cold [Unknown]
  - Chills [Unknown]
  - Tremor [Unknown]
  - Crying [Unknown]
  - Maternal exposure during pregnancy [Unknown]
  - Feeling abnormal [Unknown]
  - Feeling jittery [Unknown]
